FAERS Safety Report 15839471 (Version 1)
Quarter: 2019Q1

REPORT INFORMATION
  Report Type: Spontaneous
  Country: US (occurrence: US)
  Receive Date: 20190117
  Receipt Date: 20190117
  Transmission Date: 20190417
  Serious: No
  Sender: FDA-Public Use
  Company Number: US-PFIZER INC-2019022670

PATIENT
  Age: 63 Year
  Sex: Female

DRUGS (2)
  1. EUCRISA [Suspect]
     Active Substance: CRISABOROLE
     Indication: PRURITUS
     Dosage: UNK, 2X/DAY
     Dates: start: 201811
  2. EUCRISA [Suspect]
     Active Substance: CRISABOROLE
     Indication: DRY SKIN

REACTIONS (1)
  - Drug ineffective [Unknown]
